FAERS Safety Report 19882924 (Version 1)
Quarter: 2021Q3

REPORT INFORMATION
  Report Type: Report from Study
  Country: US (occurrence: US)
  Receive Date: 20210925
  Receipt Date: 20210925
  Transmission Date: 20211014
  Serious: Yes (Other)
  Sender: FDA-Public Use
  Company Number: NVSC2021US213528

PATIENT
  Sex: Male

DRUGS (1)
  1. ENTRESTO [Suspect]
     Active Substance: SACUBITRIL\VALSARTAN
     Indication: PRODUCT USED FOR UNKNOWN INDICATION
     Dosage: 200 MG, BID
     Route: 048

REACTIONS (5)
  - Glycosylated haemoglobin increased [Unknown]
  - Weight increased [Unknown]
  - Cardiogenic shock [Unknown]
  - Weight decreased [Unknown]
  - Atrial fibrillation [Recovered/Resolved]
